FAERS Safety Report 7437570-5 (Version None)
Quarter: 2011Q2

REPORT INFORMATION
  Report Type: 
  Country: None (occurrence: None)
  Receive Date: 20110426
  Receipt Date: 20110415
  Transmission Date: 20111010
  Serious: Yes (Death, Hospitalization, Other)
  Sender: FDA-Public Use
  Company Number: US-ELI_LILLY_AND_COMPANY-US201012001632

PATIENT
  Sex: Female
  Weight: 52.608 kg

DRUGS (30)
  1. FORTEO [Suspect]
     Dosage: 20 UG, DAILY (1/D)
     Route: 058
     Dates: end: 20110103
  2. PROPRANOLOL [Concomitant]
  3. POTASSIUM [Concomitant]
  4. RESTASIS [Concomitant]
  5. OXYCONTIN [Concomitant]
     Dosage: 40 MG, 3/D
  6. NITROFURANTOIN [Concomitant]
  7. LOTEMAX [Concomitant]
  8. FOLIC ACID [Concomitant]
  9. RELAFEN [Concomitant]
  10. REMICADE [Concomitant]
     Dosage: UNK, EVERY 8 WEEKS
  11. FORTEO [Suspect]
     Indication: OSTEOPOROSIS
     Dosage: 20 UG, DAILY (1/D)
     Route: 058
  12. METHOTREXATE [Concomitant]
  13. OXYCONTIN [Concomitant]
     Dosage: UNK, 2/D
  14. PILOCARPINE [Concomitant]
  15. GABAPENTIN [Concomitant]
  16. ADDERALL 10 [Concomitant]
  17. SPIRIVA [Concomitant]
  18. ACYCLOVIR [Concomitant]
  19. OXYCONTIN [Concomitant]
     Dosage: 20 MG, 3/D
  20. ASPIRIN [Concomitant]
     Dosage: 81 MG, UNK
  21. FUROSEMIDE [Concomitant]
  22. POLYETHYLENE GLYCOL [Concomitant]
  23. DIAZEPAM [Concomitant]
  24. PREDNISONE [Concomitant]
  25. BENICAR [Concomitant]
  26. SIMVASTATIN [Concomitant]
  27. ZOLPIDEM [Concomitant]
  28. LAMOTRIGINE [Concomitant]
  29. LEXAPRO [Concomitant]
  30. METAMUCIL-2 [Concomitant]

REACTIONS (9)
  - PAIN [None]
  - PELVIC FRACTURE [None]
  - DELIRIUM [None]
  - DELUSION [None]
  - EXPIRED DRUG ADMINISTERED [None]
  - TRANSIENT ISCHAEMIC ATTACK [None]
  - RHEUMATOID ARTHRITIS [None]
  - COGNITIVE DISORDER [None]
  - ANXIETY [None]
